FAERS Safety Report 7017762-X (Version None)
Quarter: 2010Q3

REPORT INFORMATION
  Report Type: 
  Country: None (occurrence: None)
  Receive Date: 20100909
  Receipt Date: 20100809
  Transmission Date: 20110219
  Serious: No
  Sender: FDA-Public Use
  Company Number: 2010SP043419

PATIENT
  Age: 45 Year
  Sex: Male

DRUGS (5)
  1. SAPHRIS [Suspect]
     Indication: BIPOLAR DISORDER
     Dosage: 10 MG;HS;SL
     Dates: end: 20100701
  2. SAPHRIS [Suspect]
     Indication: DEPRESSION
     Dosage: 10 MG;HS;SL
     Dates: end: 20100701
  3. SAPHRIS [Suspect]
     Indication: POST-TRAUMATIC STRESS DISORDER
     Dosage: 10 MG;HS;SL
     Dates: end: 20100701
  4. REMERON (CON.) [Concomitant]
  5. XANAX (CON.) [Concomitant]

REACTIONS (2)
  - INAPPROPRIATE SCHEDULE OF DRUG ADMINISTRATION [None]
  - MOUTH ULCERATION [None]
